FAERS Safety Report 6710777-8 (Version None)
Quarter: 2010Q2

REPORT INFORMATION
  Report Type: 
  Country: None (occurrence: None)
  Receive Date: 20100505
  Receipt Date: 20100426
  Transmission Date: 20101027
  Serious: Yes (Hospitalization)
  Sender: FDA-Public Use
  Company Number: US-BIOGENIDEC-2009BI039566

PATIENT
  Age: 61 Year
  Sex: Female
  Weight: 90 kg

DRUGS (16)
  1. TYSABRI [Suspect]
     Indication: MULTIPLE SCLEROSIS
     Route: 042
     Dates: start: 20080326, end: 20100120
  2. METOPROLOL [Concomitant]
  3. ALTACE [Concomitant]
  4. HYDROCHLOROTHIAZIDE [Concomitant]
  5. NEURONTIN [Concomitant]
  6. KLONOPIN [Concomitant]
  7. ASPIRIN [Concomitant]
  8. PERCOCET [Concomitant]
  9. POTASSIUM CHLORIDE [Concomitant]
  10. LOVAZA [Concomitant]
  11. ZOLOFT [Concomitant]
  12. RESTORIL [Concomitant]
  13. AMANTADINE HCL [Concomitant]
  14. COUMADIN [Concomitant]
  15. COUMADIN [Concomitant]
  16. REBIF [Concomitant]

REACTIONS (10)
  - ABASIA [None]
  - ARTHRALGIA [None]
  - ARTHRITIS [None]
  - BACK PAIN [None]
  - BALANCE DISORDER [None]
  - FALL [None]
  - GASTROENTERITIS VIRAL [None]
  - HYPERGLYCAEMIA [None]
  - PAIN IN EXTREMITY [None]
  - URINARY TRACT INFECTION [None]
